FAERS Safety Report 7861152-4 (Version None)
Quarter: 2011Q4

REPORT INFORMATION
  Report Type: 
  Country: None (occurrence: None)
  Receive Date: 20111027
  Receipt Date: 20111018
  Transmission Date: 20120403
  Serious: Yes (Other)
  Sender: FDA-Public Use
  Company Number: US-ASTRAZENECA-2011SE40830

PATIENT
  Age: 63 Year
  Sex: Male
  Weight: 80.7 kg

DRUGS (3)
  1. NEXIUM [Suspect]
     Route: 048
  2. CRESTOR [Suspect]
     Route: 048
  3. SYMBICORT [Suspect]
     Route: 055

REACTIONS (8)
  - ACTIVITIES OF DAILY LIVING IMPAIRED [None]
  - DRUG DOSE OMISSION [None]
  - AORTIC CALCIFICATION [None]
  - RENAL NEOPLASM [None]
  - RENAL ARTERY ARTERIOSCLEROSIS [None]
  - ABDOMINAL DISTENSION [None]
  - HEPATIC CYST [None]
  - RENAL CYST [None]
